FAERS Safety Report 21232479 (Version 1)
Quarter: 2022Q3

REPORT INFORMATION
  Report Type: Spontaneous
  Country: US (occurrence: None)
  Receive Date: 20220818
  Receipt Date: 20220818
  Transmission Date: 20221027
  Serious: No
  Sender: FDA-Public Use
  Company Number: None

PATIENT
  Sex: Male

DRUGS (1)
  1. OTEZLA [Suspect]
     Active Substance: APREMILAST
     Indication: Skin disorder
     Dosage: 30MG BID ORAL?
     Route: 048
     Dates: start: 20220309

REACTIONS (1)
  - Therapeutic product effect decreased [None]
